FAERS Safety Report 10473944 (Version 3)
Quarter: 2015Q1

REPORT INFORMATION
  Report Type: Report from Study
  Country: US (occurrence: US)
  Receive Date: 20140924
  Receipt Date: 20150126
  Transmission Date: 20150720
  Serious: Yes (Death, Hospitalization, Other)
  Sender: FDA-Public Use
  Company Number: US-GILEAD-2014-0115963

PATIENT
  Age: 37 Year
  Sex: Male

DRUGS (5)
  1. AZTREONAM LYSINE [Suspect]
     Active Substance: AZTREONAM LYSINE
     Indication: CYSTIC FIBROSIS
     Dosage: 75 MG, TID 28 DAYS ON AND 28 DAYS OFF ALTERNATING MONTHS
     Route: 055
     Dates: start: 20100322, end: 20130523
  2. VITAMIN K                          /07504001/ [Concomitant]
     Dosage: 5 MG, QD
  3. AZTREONAM LYSINE [Suspect]
     Active Substance: AZTREONAM LYSINE
     Indication: PSEUDOMONAS TEST POSITIVE
  4. VEST THERAPY [Concomitant]
  5. TOBI [Concomitant]
     Active Substance: TOBRAMYCIN
     Indication: PSEUDOMONAS INFECTION
     Dosage: UNK, BID
     Dates: start: 20130606

REACTIONS (3)
  - Haemoptysis [Fatal]
  - Pulmonary haemorrhage [Fatal]
  - Infective pulmonary exacerbation of cystic fibrosis [Unknown]
